FAERS Safety Report 23802747 (Version 1)
Quarter: 2024Q2

REPORT INFORMATION
  Report Type: Spontaneous
  Country: NL (occurrence: NL)
  Receive Date: 20240501
  Receipt Date: 20240501
  Transmission Date: 20240716
  Serious: Yes (Hospitalization, Other)
  Sender: FDA-Public Use
  Company Number: NL-NEOVII_BIOTECH-2024000017

PATIENT
  Age: 23 Year
  Sex: Male

DRUGS (7)
  1. CYCLOSPORINE [Suspect]
     Active Substance: CYCLOSPORINE
     Indication: Prophylaxis against graft versus host disease
     Dosage: 200?250 MG/L/DAY
     Route: 065
  2. FLUDARABINE [Suspect]
     Active Substance: FLUDARABINE PHOSPHATE
     Indication: Allogenic stem cell transplantation
     Dosage: 160 MG/M2
     Route: 065
  3. MYCOPHENOLIC ACID [Suspect]
     Active Substance: MYCOPHENOLIC ACID
     Indication: Prophylaxis against graft versus host disease
     Dosage: 50 MILLIGRAM/KILOGRAM, ONCE A DAY
     Route: 065
  4. PREDNISONE [Suspect]
     Active Substance: PREDNISONE
     Indication: Prophylaxis against graft versus host disease
     Dosage: 1 MILLIGRAM/KILOGRAM, ONCE A DAY
     Route: 065
  5. BUSULFAN [Suspect]
     Active Substance: BUSULFAN
     Indication: Allogenic stem cell transplantation
     Dosage: 90 MG*H/L
     Route: 065
  6. THYMOCYTE IMMUNE GLOBULIN NOS [Suspect]
     Active Substance: THYMOCYTE IMMUNE GLOBULIN NOS
     Indication: Allogenic stem cell transplantation
     Dosage: 7.5 MG/KG MLD-62
     Route: 065
  7. THYMOCYTE IMMUNE GLOBULIN NOS [Suspect]
     Active Substance: THYMOCYTE IMMUNE GLOBULIN NOS
     Indication: Prophylaxis against graft versus host disease

REACTIONS (9)
  - Pancytopenia [Unknown]
  - Viral infection [Unknown]
  - Chronic inflammatory demyelinating polyradiculoneuropathy [Unknown]
  - Diabetes mellitus inadequate control [Unknown]
  - Guillain-Barre syndrome [Unknown]
  - Acute graft versus host disease [Unknown]
  - Condition aggravated [Unknown]
  - Demyelinating polyneuropathy [Unknown]
  - Drug ineffective [Unknown]
